FAERS Safety Report 7518301 (Version 2)
Quarter: 2013Q2

REPORT INFORMATION
  Report Type: Spontaneous
  Country: US (occurrence: US)
  Receive Date: 20100802
  Receipt Date: 20130508
  Transmission Date: 20140414
  Serious: Yes (Other)
  Sender: FDA-Public Use
  Company Number: US-PFIZER INC-2009210781

PATIENT
  Age: 52 Year
  Sex: Female
  Weight: 53.52 kg

DRUGS (8)
  1. GABAPENTIN [Suspect]
     Indication: NEUROPATHY PERIPHERAL
     Dosage: 300 MG, 1X/DAY
     Route: 048
     Dates: start: 200901
  2. GABAPENTIN [Suspect]
     Indication: AUTOIMMUNE DISORDER
     Dosage: 300 MG, 2X/DAY
     Dates: start: 200901
  3. GABAPENTIN [Suspect]
     Dosage: 300 MG, 3X/DAY
     Dates: start: 200901
  4. GABAPENTIN [Suspect]
     Dosage: 12.5 MG, HS
  5. LYRICA [Suspect]
     Indication: NEUROPATHY PERIPHERAL
     Dosage: UNK
  6. CYMBALTA [Suspect]
     Indication: NEUROPATHY PERIPHERAL
     Dosage: UNK
  7. AMITIZA [Concomitant]
     Dosage: UNK
  8. METHOTREXATE [Concomitant]
     Dosage: UNK

REACTIONS (14)
  - Suicidal ideation [Unknown]
  - Depression [Unknown]
  - Incorrect dose administered [Unknown]
  - Drug ineffective [Unknown]
  - Anxiety [Unknown]
  - Crying [Unknown]
  - Mood altered [Unknown]
  - Disturbance in attention [Unknown]
  - Nervousness [Unknown]
  - Hunger [Recovering/Resolving]
  - Somnolence [Recovering/Resolving]
  - Increased appetite [Unknown]
  - Therapeutic response unexpected [Unknown]
  - Fatigue [Unknown]
